FAERS Safety Report 18680577 (Version 1)
Quarter: 2020Q4

REPORT INFORMATION
  Report Type: Spontaneous
  Country: CN (occurrence: CN)
  Receive Date: 20201230
  Receipt Date: 20201230
  Transmission Date: 20210114
  Serious: Yes (Hospitalization, Other)
  Sender: FDA-Public Use
  Company Number: CN-LUPIN PHARMACEUTICALS INC.-2020-06349

PATIENT
  Age: 53 Year
  Sex: Female

DRUGS (1)
  1. DICLOFENAC [Suspect]
     Active Substance: DICLOFENAC
     Indication: PROCEDURAL PAIN
     Dosage: UNK (TWO TO THREE TIMES BY HERSELF; FORMULATION: SUPPOSITORIES)
     Route: 065

REACTIONS (1)
  - Rectal ulcer haemorrhage [Recovered/Resolved]
